FAERS Safety Report 9060804 (Version 1)
Quarter: 2013Q1

REPORT INFORMATION
  Report Type: Spontaneous
  Country: US (occurrence: US)
  Receive Date: 20130204
  Receipt Date: 20130204
  Transmission Date: 20140127
  Serious: No
  Sender: FDA-Public Use
  Company Number: US-009507513-1301USA009504

PATIENT
  Age: 22 None
  Sex: Female
  Weight: 67.12 kg

DRUGS (1)
  1. IMPLANON [Suspect]
     Indication: CONTRACEPTION
     Dosage: UNK
     Dates: start: 20101001

REACTIONS (3)
  - Amenorrhoea [Unknown]
  - Nausea [Unknown]
  - Headache [Unknown]
